FAERS Safety Report 14476470 (Version 2)
Quarter: 2018Q2

REPORT INFORMATION
  Report Type: Spontaneous
  Country: US (occurrence: US)
  Receive Date: 20180201
  Receipt Date: 20180430
  Transmission Date: 20180711
  Serious: No
  Sender: FDA-Public Use
  Company Number: US-SA-2018SA007372

PATIENT
  Age: 55 Year
  Sex: Female
  Weight: 138 kg

DRUGS (2)
  1. PRALUENT [Suspect]
     Active Substance: ALIROCUMAB
     Route: 058
     Dates: start: 20171016
  2. ALIROCUMAB PREFILLED PEN [Suspect]
     Active Substance: ALIROCUMAB
     Dates: start: 20171016

REACTIONS (3)
  - Hypertension [Unknown]
  - Musculoskeletal pain [Unknown]
  - Palpitations [Unknown]

NARRATIVE: CASE EVENT DATE: 2017
